FAERS Safety Report 22396603 (Version 1)
Quarter: 2023Q2

REPORT INFORMATION
  Report Type: Spontaneous
  Country: US (occurrence: US)
  Receive Date: 20230601
  Receipt Date: 20230601
  Transmission Date: 20230721
  Serious: No
  Sender: FDA-Public Use
  Company Number: US-Teikoku Pharma USA-TPU2023-00316

PATIENT
  Sex: Female

DRUGS (2)
  1. LIDOCAINE PATCH [Suspect]
     Active Substance: LIDOCAINE
     Indication: Neuropathy peripheral
     Route: 065
  2. LIDODERM [Suspect]
     Active Substance: LIDOCAINE
     Indication: Neuropathy peripheral
     Route: 061

REACTIONS (1)
  - Drug ineffective for unapproved indication [Unknown]
